FAERS Safety Report 12407146 (Version 1)
Quarter: 2016Q2

REPORT INFORMATION
  Report Type: Spontaneous
  Country: US (occurrence: US)
  Receive Date: 20160526
  Receipt Date: 20160526
  Transmission Date: 20160815
  Serious: No
  Sender: FDA-Public Use
  Company Number: US-PFIZER INC-2016245286

PATIENT
  Age: 60 Year
  Sex: Male
  Weight: 75 kg

DRUGS (1)
  1. LYRICA [Suspect]
     Active Substance: PREGABALIN
     Dosage: UNK

REACTIONS (5)
  - Drug dose omission [Unknown]
  - Therapeutic response unexpected [Unknown]
  - Pain [Unknown]
  - Pre-existing condition improved [Unknown]
  - Libido decreased [Unknown]

NARRATIVE: CASE EVENT DATE: 20160503
